FAERS Safety Report 21866284 (Version 1)
Quarter: 2023Q1

REPORT INFORMATION
  Report Type: Other
  Country: CA (occurrence: None)
  Receive Date: 20230116
  Receipt Date: 20230116
  Transmission Date: 20230417
  Serious: Yes (Other)
  Sender: FDA-Public Use
  Company Number: CA-ROCHE-3259858

PATIENT
  Sex: Female

DRUGS (5)
  1. ACTEMRA [Suspect]
     Active Substance: TOCILIZUMAB
     Indication: Vasculitis
     Dosage: DRUG DOSE FIRST ADMINISTERED IS 162 MG MILLIGRAM(S) - 162 MG/ 0.9 ML PRE-FILLED SYRINGE (PFS)
     Route: 058
     Dates: start: 20210519
  2. ACTEMRA [Suspect]
     Active Substance: TOCILIZUMAB
     Indication: Giant cell arteritis
  3. CALCIUM [Concomitant]
     Active Substance: CALCIUM
  4. PREDNISONE [Concomitant]
     Active Substance: PREDNISONE
  5. RISEDRONATE SODIUM [Concomitant]
     Active Substance: RISEDRONATE SODIUM

REACTIONS (3)
  - Aortitis [Unknown]
  - Giant cell arteritis [Unknown]
  - Off label use [Unknown]
